FAERS Safety Report 6453943-1 (Version None)
Quarter: 2009Q4

REPORT INFORMATION
  Report Type: 
  Country: None (occurrence: None)
  Receive Date: 20091124
  Receipt Date: 20091118
  Transmission Date: 20100525
  Serious: Yes (Death, Life-Threatening, Hospitalization)
  Sender: FDA-Public Use
  Company Number: JP-BAYER-200913635BYL

PATIENT
  Age: 71 Year
  Sex: Male
  Weight: 58 kg

DRUGS (16)
  1. NEXAVAR [Suspect]
     Indication: HEPATIC NEOPLASM MALIGNANT
     Dosage: TOTAL DAILY DOSE: 400 MG  UNIT DOSE: 200 MG
     Route: 048
     Dates: start: 20090824, end: 20090930
  2. NEXAVAR [Suspect]
     Dosage: TOTAL DAILY DOSE: 400 MG  UNIT DOSE: 200 MG
     Route: 048
     Dates: start: 20091001, end: 20091003
  3. OXYCONTIN [Concomitant]
     Indication: ABDOMINAL PAIN
     Dosage: TOTAL DAILY DOSE: 45 MG
     Route: 048
     Dates: start: 20090828
  4. OXYCONTIN [Concomitant]
     Route: 048
     Dates: start: 20090915, end: 20091001
  5. OXYCONTIN [Concomitant]
     Dosage: BEFORE NEXAVAR ADMINISTRATION
     Route: 048
  6. SANDOSTATIN [Concomitant]
     Indication: ILEUS
     Route: 042
     Dates: start: 20090922, end: 20090929
  7. FRESH FROZEN PLASMA [Concomitant]
     Indication: DISSEMINATED INTRAVASCULAR COAGULATION
     Route: 042
     Dates: start: 20091005
  8. SPIRONOLACTONE [Concomitant]
     Dosage: BEFORE NEXAVAR ADMINISTRATION
     Route: 048
  9. LIVACT [Concomitant]
     Dosage: BEFORE NEXAVAR ADMINISTRATION
     Route: 048
  10. HALCION [Concomitant]
     Dosage: BEFORE NEXAVAR ADMINISTRATION
     Route: 048
  11. MOBIC [Concomitant]
     Dosage: BEFORE NEXAVAR ADMINISTRATION
     Route: 048
     Dates: end: 20090930
  12. AMLODIPINE [Concomitant]
     Dosage: BEFORE NEXAVAR ADMINISTRATION
     Route: 048
     Dates: end: 20091001
  13. TAKEPRON [Concomitant]
     Indication: DUODENAL ULCER
     Dosage: BEFORE NEXAVAR ADMINISTRATION
     Route: 048
     Dates: end: 20091003
  14. LASIX [Concomitant]
     Route: 048
     Dates: start: 20090828, end: 20090930
  15. ALBUMINAR [Concomitant]
     Route: 042
     Dates: start: 20090925, end: 20090927
  16. DUROTEP [Concomitant]
     Route: 062
     Dates: start: 20091001, end: 20091008

REACTIONS (9)
  - ALTERED STATE OF CONSCIOUSNESS [None]
  - ARTERIAL THROMBOSIS LIMB [None]
  - BLOOD CREATINE PHOSPHOKINASE INCREASED [None]
  - HEPATIC FUNCTION ABNORMAL [None]
  - HEPATIC NEOPLASM MALIGNANT [None]
  - HYPONATRAEMIA [None]
  - PLATELET COUNT DECREASED [None]
  - RASH [None]
  - RENAL IMPAIRMENT [None]
